FAERS Safety Report 7155199-3 (Version None)
Quarter: 2010Q4

REPORT INFORMATION
  Report Type: 
  Country: None (occurrence: None)
  Receive Date: 20101214
  Receipt Date: 20091201
  Transmission Date: 20110411
  Serious: Yes (Other)
  Sender: FDA-Public Use
  Company Number: US-AMGEN-QUU375912

PATIENT

DRUGS (4)
  1. ENBREL [Suspect]
     Indication: RHEUMATOID ARTHRITIS
     Dosage: 50 MG, QWK
     Route: 058
     Dates: start: 20081020, end: 20090930
  2. METHOTREXATE [Concomitant]
     Dosage: 20 MG, QWK
  3. MODAFINIL [Concomitant]
  4. FOLIC ACID [Concomitant]

REACTIONS (1)
  - BASAL CELL CARCINOMA [None]
